FAERS Safety Report 15580000 (Version 1)
Quarter: 2018Q4

REPORT INFORMATION
  Report Type: Spontaneous
  Country: US (occurrence: US)
  Receive Date: 20181102
  Receipt Date: 20181102
  Transmission Date: 20190205
  Serious: Yes (Other)
  Sender: FDA-Public Use
  Company Number: None

PATIENT
  Age: 65 Year
  Sex: Female
  Weight: 51.3 kg

DRUGS (1)
  1. ZILRETTA [Suspect]
     Active Substance: TRIAMCINOLONE ACETONIDE
     Indication: OSTEOARTHRITIS

REACTIONS (5)
  - Burning sensation [None]
  - Arthralgia [None]
  - Joint swelling [None]
  - Injection site swelling [None]
  - Rhinorrhoea [None]

NARRATIVE: CASE EVENT DATE: 20181023
